FAERS Safety Report 7945718-9 (Version None)
Quarter: 2011Q4

REPORT INFORMATION
  Report Type: 
  Country: None (occurrence: None)
  Receive Date: 20111129
  Receipt Date: 20110831
  Transmission Date: 20120403
  Serious: No
  Sender: FDA-Public Use
  Company Number: US-MYLANLABS-2011S1018361

PATIENT
  Age: 59 Year
  Sex: Female

DRUGS (2)
  1. CLONAZEPAM [Suspect]
     Indication: ANXIETY
     Route: 048
     Dates: start: 20110817, end: 20110823
  2. CLONAZEPAM [Suspect]
     Route: 048
     Dates: start: 20110824

REACTIONS (3)
  - ALOPECIA [None]
  - HEADACHE [None]
  - REACTION TO DRUG EXCIPIENTS [None]
